FAERS Safety Report 4567458-9 (Version None)
Quarter: 2005Q1

REPORT INFORMATION
  Report Type: 
  Country: None (occurrence: None)
  Receive Date: 20050201
  Receipt Date: 20050111
  Transmission Date: 20050727
  Serious: Yes (Other)
  Sender: FDA-Public Use
  Company Number: NL-MERCK-0501NLD00018

PATIENT
  Age: 14 Year
  Sex: Male

DRUGS (1)
  1. SINGULAIR [Suspect]
     Indication: ARTHRITIS
     Route: 048
     Dates: start: 20041220, end: 20041225

REACTIONS (1)
  - PAIN IN EXTREMITY [None]
